FAERS Safety Report 8400504-0 (Version None)
Quarter: 2012Q2

REPORT INFORMATION
  Report Type: 
  Country: None (occurrence: None)
  Receive Date: 20120531
  Receipt Date: 20120518
  Transmission Date: 20120825
  Serious: No
  Sender: FDA-Public Use
  Company Number: US-ASTRAZENECA-2012SE32332

PATIENT
  Sex: Female

DRUGS (2)
  1. IPRATROPIUM BROMIDE [Suspect]
     Route: 065
  2. PULMICORT [Suspect]
     Route: 055

REACTIONS (2)
  - DYSPHONIA [None]
  - DRUG PRESCRIBING ERROR [None]
